FAERS Safety Report 8043956-0 (Version None)
Quarter: 2012Q1

REPORT INFORMATION
  Report Type: 
  Country: None (occurrence: None)
  Receive Date: 20120113
  Receipt Date: 20120104
  Transmission Date: 20120608
  Serious: No
  Sender: FDA-Public Use
  Company Number: US-BIOGENIDEC-2012BI000550

PATIENT
  Age: 59 Year
  Sex: Female

DRUGS (1)
  1. AVONEX [Suspect]
     Indication: MULTIPLE SCLEROSIS
     Route: 030
     Dates: start: 20090901

REACTIONS (6)
  - VITAMIN B12 DECREASED [None]
  - FEELING ABNORMAL [None]
  - FATIGUE [None]
  - MENTAL IMPAIRMENT [None]
  - HYPOAESTHESIA [None]
  - PAIN IN EXTREMITY [None]
